FAERS Safety Report 9345212 (Version 2)
Quarter: 2013Q4

REPORT INFORMATION
  Report Type: Spontaneous
  Country: GB (occurrence: GB)
  Receive Date: 20130612
  Receipt Date: 20131024
  Transmission Date: 20140711
  Serious: Yes (Disabling, Congenital Anomaly)
  Sender: FDA-Public Use
  Company Number: GB-MYLANLABS-2013S1012110

PATIENT
  Sex: 0

DRUGS (1)
  1. CITALOPRAM HYDROBROMIDE [Suspect]
     Route: 064
     Dates: start: 20090810

REACTIONS (4)
  - Aorta hypoplasia [Unknown]
  - Atrioventricular septal defect [Unknown]
  - Ventricular hypoplasia [Unknown]
  - Exposure during pregnancy [Recovered/Resolved]
